FAERS Safety Report 5797446-6 (Version None)
Quarter: 2008Q2

REPORT INFORMATION
  Report Type: 
  Country: None (occurrence: None)
  Receive Date: 20080630
  Receipt Date: 20080617
  Transmission Date: 20081010
  Serious: Yes (Hospitalization)
  Sender: FDA-Public Use
  Company Number: 1-16291121/MED-08120

PATIENT
  Age: 63 Year
  Sex: Male

DRUGS (11)
  1. BACTRIM [Suspect]
     Dosage: ORAL
     Route: 048
  2. MORPHINE HCL ELIXIR [Suspect]
     Indication: ANALGESIC THERAPY
     Dosage: SUBCUTANEOUS
     Route: 058
     Dates: start: 20080502, end: 20080503
  3. MORPHINE [Suspect]
     Indication: ANALGESIC THERAPY
     Dates: start: 20080503, end: 20080513
  4. SU-011,248 (SUNITINIB MALATE) [Suspect]
     Indication: THYROID CANCER
     Dosage: ORAL, 50 MG EVERY OTHER DATE ALTERNATING WITH 37.5 MG EVERY OTHER DAY X 28 DAYS ON THEN 14 DAYS OFF
     Route: 048
     Dates: start: 20050307
  5. LEVOTHYROXINE SODIUM [Concomitant]
  6. TENORMIN [Concomitant]
  7. AVAPRO [Concomitant]
  8. ACETAMINOPHEN [Concomitant]
  9. KEPPRA [Concomitant]
  10. NEXIUM [Concomitant]
  11. GLYCERYL TRINITRATE PATCH [Concomitant]

REACTIONS (4)
  - CONFUSIONAL STATE [None]
  - HYPERKALAEMIA [None]
  - PNEUMONIA [None]
  - PNEUMOTHORAX [None]
